FAERS Safety Report 14048277 (Version 2)
Quarter: 2017Q4

REPORT INFORMATION
  Report Type: Spontaneous
  Country: JP (occurrence: JP)
  Receive Date: 20171005
  Receipt Date: 20171106
  Transmission Date: 20180321
  Serious: Yes (Hospitalization, Other)
  Sender: FDA-Public Use
  Company Number: PHJP2017JP029911

PATIENT
  Sex: Male

DRUGS (1)
  1. GLIVEC [Suspect]
     Active Substance: IMATINIB MESYLATE
     Indication: GASTROINTESTINAL STROMAL TUMOUR
     Route: 048

REACTIONS (8)
  - Pancreatitis acute [Unknown]
  - Renal cell carcinoma [Unknown]
  - Metastases to pleura [Unknown]
  - Prostate cancer [Unknown]
  - Pollakiuria [Unknown]
  - Second primary malignancy [Unknown]
  - Cholelithiasis [Unknown]
  - Metastases to lymph nodes [Unknown]

NARRATIVE: CASE EVENT DATE: 201410
